FAERS Safety Report 4515670-7 (Version None)
Quarter: 2004Q4

REPORT INFORMATION
  Report Type: 
  Country: None (occurrence: None)
  Receive Date: 20041201
  Receipt Date: 20041029
  Transmission Date: 20050328
  Serious: Yes (Other)
  Sender: FDA-Public Use
  Company Number: BE-MERCK-0411BEL00014

PATIENT
  Age: 74 Year
  Sex: Female
  Weight: 48 kg

DRUGS (6)
  1. FOSAMAX [Suspect]
     Indication: OSTEOPOROSIS
     Route: 048
     Dates: start: 20010201, end: 20040701
  2. CALCIUM CARBONATE [Concomitant]
     Indication: OSTEOPOROSIS
     Route: 048
  3. LEVOTHYROXINE SODIUM [Suspect]
     Indication: HYPOTHYROIDISM
     Route: 048
  4. AMITRIPTYLINE HYDROCHLORIDE [Concomitant]
     Indication: DEPRESSION
     Route: 048
  5. VITAMIN D (UNSPECIFIED) [Concomitant]
     Indication: OSTEOPOROSIS
     Route: 048
  6. IBUPROFEN [Concomitant]
     Indication: OSTEOARTHRITIS
     Route: 048

REACTIONS (1)
  - OSTEOMALACIA [None]
